FAERS Safety Report 8605117-3 (Version None)
Quarter: 2012Q3

REPORT INFORMATION
  Report Type: 
  Country: None (occurrence: None)
  Receive Date: 20120820
  Receipt Date: 20120813
  Transmission Date: 20120928
  Serious: Yes (Death)
  Sender: FDA-Public Use
  Company Number: BE-UCBSA-063592

PATIENT
  Age: 46 Year
  Sex: Female

DRUGS (4)
  1. VIMPAT [Suspect]
     Route: 042
     Dates: start: 20120803
  2. ENOXAPARIN SODIUM [Suspect]
     Route: 058
  3. PHENYTOIN SODIUM [Suspect]
     Route: 042
  4. SULFAMETHOXAZOLE AND TRIMETHOPRIM [Suspect]
     Route: 042

REACTIONS (2)
  - SEPTIC SHOCK [None]
  - PLATELET COUNT DECREASED [None]
